FAERS Safety Report 13094524 (Version 4)
Quarter: 2020Q1

REPORT INFORMATION
  Report Type: Spontaneous
  Country: FI (occurrence: FI)
  Receive Date: 20170106
  Receipt Date: 20200213
  Transmission Date: 20200409
  Serious: Yes (Hospitalization, Other)
  Sender: FDA-Public Use
  Company Number: FI-ABBVIE-17P-055-1831521-00

PATIENT
  Age: 31 Year
  Sex: Male

DRUGS (18)
  1. SERENASE (HALOPERIDOL) [Interacting]
     Active Substance: HALOPERIDOL
     Indication: PRODUCT USED FOR UNKNOWN INDICATION
     Dosage: AT BEDTIME
     Route: 048
     Dates: start: 20150409, end: 2015
  2. SERENASE (HALOPERIDOL) [Interacting]
     Active Substance: HALOPERIDOL
     Dosage: AT NIGHT
     Route: 048
     Dates: start: 20150606
  3. SUPRIUM [Interacting]
     Active Substance: SULPIRIDE
     Indication: PRODUCT USED FOR UNKNOWN INDICATION
     Route: 048
     Dates: start: 201308
  4. LEVOZIN [LEVOMEPROMAZINE MALEATE] [Interacting]
     Active Substance: LEVOMEPROMAZINE MALEATE
     Indication: PRODUCT USED FOR UNKNOWN INDICATION
     Route: 065
  5. DEPAKINE [Suspect]
     Active Substance: VALPROATE SODIUM
     Indication: MANIA
     Dosage: TABLET, EXTENDED RELEASE
     Route: 048
     Dates: start: 20150225
  6. NALTREXONE HYDROCHLORIDE. [Interacting]
     Active Substance: NALTREXONE HYDROCHLORIDE
     Indication: PRODUCT USED FOR UNKNOWN INDICATION
     Dosage: DAILY
     Route: 048
     Dates: start: 20160324
  7. KETIPINOR [Interacting]
     Active Substance: QUETIAPINE FUMARATE
     Indication: PRODUCT USED FOR UNKNOWN INDICATION
     Dosage: DAILY
     Route: 048
     Dates: start: 20150917
  8. FROIDIR [Interacting]
     Active Substance: CLOZAPINE
     Indication: PRODUCT USED FOR UNKNOWN INDICATION
     Dosage: DAILY
     Route: 048
     Dates: start: 20150225
  9. VI-SIBLIN [PLANTAGO OVATA] [Interacting]
     Active Substance: HERBALS\PLANTAGO OVATA LEAF
     Indication: PRODUCT USED FOR UNKNOWN INDICATION
     Dosage: AT BEDTIME
     Route: 048
     Dates: start: 20150731
  10. TOILAX [Interacting]
     Active Substance: BISACODYL
     Indication: PRODUCT USED FOR UNKNOWN INDICATION
     Dosage: AT BEDTIME
     Route: 054
     Dates: start: 20160415
  11. LAXOBERON [Interacting]
     Active Substance: SODIUM PICOSULFATE
     Indication: PRODUCT USED FOR UNKNOWN INDICATION
     Route: 048
     Dates: start: 20150622
  12. DEPAKINE [Interacting]
     Active Substance: VALPROATE SODIUM
     Indication: EPILEPSY
  13. LITO [Interacting]
     Active Substance: LITHIUM CARBONATE
     Indication: PRODUCT USED FOR UNKNOWN INDICATION
     Dosage: DAILY
     Route: 048
     Dates: start: 20150225
  14. SERENASE (HALOPERIDOL) [Interacting]
     Active Substance: HALOPERIDOL
     Dosage: DAILY
     Route: 048
     Dates: start: 20160129
  15. DIAPAM (DIAZEPAM) [Interacting]
     Active Substance: DIAZEPAM
     Indication: PRODUCT USED FOR UNKNOWN INDICATION
     Dosage: AT BEDTIME
     Route: 048
     Dates: start: 20150409
  16. TENOX (TEMAZEPAM) [Interacting]
     Active Substance: TEMAZEPAM
     Indication: SLEEP DISORDER
     Route: 048
     Dates: start: 20150622
  17. PEGORION [Interacting]
     Active Substance: POLYETHYLENE GLYCOL 4000
     Indication: PRODUCT USED FOR UNKNOWN INDICATION
     Dosage: DAILY
     Route: 048
     Dates: start: 20160419
  18. RISPERDAL [Interacting]
     Active Substance: RISPERIDONE
     Indication: PRODUCT USED FOR UNKNOWN INDICATION
     Route: 065

REACTIONS (44)
  - Gynaecomastia [Not Recovered/Not Resolved]
  - Hypotonia [Not Recovered/Not Resolved]
  - Restlessness [Not Recovered/Not Resolved]
  - Decreased appetite [Unknown]
  - Posture abnormal [Unknown]
  - Muscle twitching [Not Recovered/Not Resolved]
  - Hallucination, visual [Not Recovered/Not Resolved]
  - Gait disturbance [Not Recovered/Not Resolved]
  - Cyanosis [Not Recovered/Not Resolved]
  - Depressed level of consciousness [Not Recovered/Not Resolved]
  - Memory impairment [Unknown]
  - Loss of personal independence in daily activities [Unknown]
  - Malaise [Unknown]
  - Tremor [Not Recovered/Not Resolved]
  - Deafness transitory [Not Recovered/Not Resolved]
  - Hyperhidrosis [Not Recovered/Not Resolved]
  - Constipation [Not Recovered/Not Resolved]
  - Speech disorder [Not Recovered/Not Resolved]
  - Posture abnormal [Not Recovered/Not Resolved]
  - Dyskinesia [Not Recovered/Not Resolved]
  - Hair disorder [Not Recovered/Not Resolved]
  - Epilepsy [Recovered/Resolved]
  - Memory impairment [Not Recovered/Not Resolved]
  - Sudden onset of sleep [Not Recovered/Not Resolved]
  - Nausea [Not Recovered/Not Resolved]
  - Epilepsy [Unknown]
  - Substance abuse [Unknown]
  - Toxicity to various agents [Unknown]
  - Peripheral coldness [Not Recovered/Not Resolved]
  - Dysarthria [Not Recovered/Not Resolved]
  - Glassy eyes [Not Recovered/Not Resolved]
  - Reduced facial expression [Not Recovered/Not Resolved]
  - Dyspnoea [Not Recovered/Not Resolved]
  - Drug interaction [Not Recovered/Not Resolved]
  - Somnolence [Not Recovered/Not Resolved]
  - Drooling [Not Recovered/Not Resolved]
  - Mouth breathing [Not Recovered/Not Resolved]
  - Cognitive disorder [Not Recovered/Not Resolved]
  - Gastric dilatation [Unknown]
  - Dizziness [Not Recovered/Not Resolved]
  - Heart rate increased [Not Recovered/Not Resolved]
  - Mutism [Not Recovered/Not Resolved]
  - Head titubation [Not Recovered/Not Resolved]
  - Diplopia [Not Recovered/Not Resolved]

NARRATIVE: CASE EVENT DATE: 201602
